FAERS Safety Report 4754285-2 (Version None)
Quarter: 2005Q3

REPORT INFORMATION
  Report Type: 
  Country: None (occurrence: None)
  Receive Date: 20050829
  Receipt Date: 20050719
  Transmission Date: 20060218
  Serious: Yes (Hospitalization)
  Sender: FDA-Public Use
  Company Number: 2005UW10753

PATIENT
  Age: 6513 Day
  Sex: Female
  Weight: 72.7 kg

DRUGS (4)
  1. SEROQUEL [Suspect]
     Indication: PSYCHOTIC DISORDER
     Dosage: AMOUNT OF OVERDOSE
     Route: 048
  2. SEROQUEL [Suspect]
     Dosage: PRESCRIBED DOSE
     Route: 048
  3. ZOLOFT [Suspect]
     Indication: DEPRESSION
     Dosage: AMOUNT OF OVERDOSE
     Route: 048
  4. ZOLOFT [Suspect]
     Dosage: PRESCRIBED DOSE
     Route: 048

REACTIONS (5)
  - CONVULSION [None]
  - INTENTIONAL MISUSE [None]
  - OVERDOSE [None]
  - PNEUMONIA ASPIRATION [None]
  - SUICIDE ATTEMPT [None]
